FAERS Safety Report 6126058-X (Version None)
Quarter: 2009Q1

REPORT INFORMATION
  Report Type: 
  Country: None (occurrence: None)
  Receive Date: 20090320
  Receipt Date: 20090311
  Transmission Date: 20090719
  Serious: Yes (Hospitalization)
  Sender: FDA-Public Use
  Company Number: DE-JNJFOC-20090302443

PATIENT
  Age: 76 Year
  Sex: Female

DRUGS (11)
  1. RISPERDAL [Suspect]
     Route: 048
  2. RISPERDAL [Suspect]
     Route: 048
  3. RISPERDAL [Suspect]
     Route: 048
  4. RISPERDAL [Suspect]
     Indication: DRUG USE FOR UNKNOWN INDICATION
     Route: 048
  5. LEVOTHYROXINE SODIUM [Concomitant]
     Route: 048
  6. DELIX [Concomitant]
     Route: 048
  7. PANTOZOL [Concomitant]
     Route: 048
  8. HCT HEXAL [Concomitant]
     Route: 048
  9. ANAFRANIL [Concomitant]
     Route: 048
  10. TAVOR [Concomitant]
     Route: 048
  11. AMITRIPTYLINE HCL [Concomitant]
     Route: 048

REACTIONS (5)
  - HYPERTROPHIC CARDIOMYOPATHY [None]
  - LISTLESS [None]
  - NEUROLEPTIC MALIGNANT SYNDROME [None]
  - PNEUMONIA [None]
  - URINARY TRACT INFECTION [None]
